FAERS Safety Report 9902901 (Version 1)
Quarter: 2014Q1

REPORT INFORMATION
  Report Type: Spontaneous
  Country: US (occurrence: US)
  Receive Date: 20140217
  Receipt Date: 20140217
  Transmission Date: 20141002
  Serious: Yes (Hospitalization, Other)
  Sender: FDA-Public Use
  Company Number: PHHY2014US016651

PATIENT
  Age: 73 Year
  Sex: Male

DRUGS (4)
  1. 5-FLUOROURACIL [Suspect]
     Indication: OESOPHAGEAL CARCINOMA
     Dosage: 1500 MG, PER DAY
     Route: 042
  2. CISPLATIN [Concomitant]
     Indication: OESOPHAGEAL CARCINOMA
     Dosage: 130 MG, UNK
     Route: 042
  3. DEXAMETHASONE [Concomitant]
     Dosage: 4 MG, Q6H
     Route: 042
  4. ONDANSETRON [Concomitant]
     Dosage: 20 MG, UNK
     Route: 042

REACTIONS (12)
  - Neurotoxicity [Unknown]
  - Nervous system disorder [Unknown]
  - Cognitive disorder [Recovering/Resolving]
  - Judgement impaired [Recovering/Resolving]
  - Memory impairment [Recovering/Resolving]
  - Encephalopathy [Recovered/Resolved]
  - Confusional state [Recovered/Resolved]
  - Disorientation [Recovered/Resolved]
  - Nystagmus [Recovered/Resolved]
  - Ataxia [Not Recovered/Not Resolved]
  - Grand mal convulsion [Recovered/Resolved]
  - Extensor plantar response [Recovered/Resolved]
